FAERS Safety Report 21760490 (Version 1)
Quarter: 2022Q4

REPORT INFORMATION
  Report Type: Spontaneous
  Country: US (occurrence: None)
  Receive Date: 20221220
  Receipt Date: 20221220
  Transmission Date: 20230112
  Serious: Yes (Hospitalization)
  Sender: FDA-Public Use
  Company Number: None

PATIENT
  Sex: Male

DRUGS (1)
  1. ZIEXTENZO [Suspect]
     Active Substance: PEGFILGRASTIM-BMEZ
     Dosage: 6MG ONCE EVERY 21 DAYS SQ?
     Route: 058
     Dates: start: 20220818

REACTIONS (3)
  - Platelet count decreased [None]
  - Haemoglobin decreased [None]
  - Epistaxis [None]
